FAERS Safety Report 19199954 (Version 1)
Quarter: 2021Q2

REPORT INFORMATION
  Report Type: Report from Study
  Country: CA (occurrence: CA)
  Receive Date: 20210430
  Receipt Date: 20210430
  Transmission Date: 20210717
  Serious: Yes (Hospitalization)
  Sender: FDA-Public Use
  Company Number: CA-ORION CORPORATION ORION PHARMA-21_00014166

PATIENT
  Age: 53 Year
  Sex: Female

DRUGS (8)
  1. HYDROXYCHLOROQUINE [Concomitant]
     Active Substance: HYDROXYCHLOROQUINE
     Route: 065
  2. ARAVA [Concomitant]
     Active Substance: LEFLUNOMIDE
     Route: 048
  3. METRONIDAZOLE. [Concomitant]
     Active Substance: METRONIDAZOLE
     Route: 065
  4. PIROXICAM. [Concomitant]
     Active Substance: PIROXICAM
     Dosage: AS NEEDED
     Route: 065
  5. BRENZYS [Suspect]
     Active Substance: ETANERCEPT
     Indication: RHEUMATOID ARTHRITIS
     Route: 058
  6. METHOTREXATE (TRADE NAME UNKNOWN) [Suspect]
     Active Substance: METHOTREXATE
     Route: 058
  7. METHOTREXATE (TRADE NAME UNKNOWN) [Suspect]
     Active Substance: METHOTREXATE
     Indication: PRODUCT USED FOR UNKNOWN INDICATION
     Route: 048
  8. CIPROFLOXACIN. [Concomitant]
     Active Substance: CIPROFLOXACIN
     Route: 065

REACTIONS (5)
  - Diverticulitis [Unknown]
  - Back pain [Unknown]
  - Joint swelling [Unknown]
  - Drug ineffective [Unknown]
  - Drug intolerance [Unknown]
